FAERS Safety Report 14479517 (Version 1)
Quarter: 2018Q1

REPORT INFORMATION
  Report Type: Spontaneous
  Country: US (occurrence: US)
  Receive Date: 20180201
  Receipt Date: 20180201
  Transmission Date: 20180509
  Serious: Yes (Hospitalization, Other)
  Sender: FDA-Public Use
  Company Number: None

PATIENT
  Age: 70 Year
  Sex: Male
  Weight: 70.31 kg

DRUGS (9)
  1. ROSUVASTATIN CALCIUM. [Concomitant]
     Active Substance: ROSUVASTATIN CALCIUM
  2. FISH OIL [Concomitant]
     Active Substance: FISH OIL
  3. VITAMIN C [Concomitant]
     Active Substance: ASCORBIC ACID
  4. HAIR, SKIN + NAILS [Concomitant]
     Active Substance: MINERALS\VITAMINS
  5. COQ10 [Concomitant]
     Active Substance: UBIDECARENONE
  6. CELECOXIB. [Suspect]
     Active Substance: CELECOXIB
     Indication: PRODUCT USED FOR UNKNOWN INDICATION
     Route: 048
     Dates: start: 20171030, end: 20171031
  7. METOPROLOL ER SUCCINATE [Concomitant]
     Active Substance: METOPROLOL SUCCINATE
  8. ASPIRIN. [Concomitant]
     Active Substance: ASPIRIN
  9. VITAMIN D3 [Concomitant]
     Active Substance: CHOLECALCIFEROL

REACTIONS (9)
  - Eye movement disorder [None]
  - Chest pain [None]
  - Aggression [None]
  - Foaming at mouth [None]
  - Unresponsive to stimuli [None]
  - Pneumonia [None]
  - Pharyngeal disorder [None]
  - Multiple injuries [None]
  - Anger [None]

NARRATIVE: CASE EVENT DATE: 20171031
